FAERS Safety Report 6996621-2 (Version None)
Quarter: 2010Q3

REPORT INFORMATION
  Report Type: 
  Country: None (occurrence: None)
  Receive Date: 20100918
  Receipt Date: 20090508
  Transmission Date: 20110219
  Serious: No
  Sender: FDA-Public Use
  Company Number: US-WYE-H09288809

PATIENT
  Sex: Female

DRUGS (9)
  1. EFFEXOR XR [Suspect]
     Route: 048
  2. NEXIUM [Concomitant]
  3. CYTOMEL [Concomitant]
  4. OXYCODONE HCL [Concomitant]
  5. FENTANYL CITRATE [Concomitant]
  6. AMFEBUTAMONE [Concomitant]
  7. PROPRANOLOL [Concomitant]
  8. LISINOPRIL [Concomitant]
  9. ROBINUL [Concomitant]

REACTIONS (1)
  - DRUG SCREEN FALSE POSITIVE [None]
